FAERS Safety Report 9800224 (Version 2)
Quarter: 2014Q1

REPORT INFORMATION
  Report Type: Spontaneous
  Country: US (occurrence: US)
  Receive Date: 20140106
  Receipt Date: 20140207
  Transmission Date: 20141002
  Serious: No
  Sender: FDA-Public Use
  Company Number: US-009507513-1312USA009795

PATIENT
  Sex: Female
  Weight: 108.84 kg

DRUGS (4)
  1. OXYTROL FOR WOMEN [Suspect]
     Indication: POLLAKIURIA
     Dosage: UNK, UNKNOWN
     Route: 062
  2. BENICAR HCT [Concomitant]
     Indication: HYPERTENSION
     Dosage: UNK, UNKNOWN
  3. ATENOLOL [Concomitant]
     Indication: HYPERTENSION
     Dosage: UNK, UNKNOWN
  4. ATORVASTATIN CALCIUM [Concomitant]
     Indication: BLOOD CHOLESTEROL INCREASED
     Dosage: UNK, UNKNOWN

REACTIONS (4)
  - Application site dermatitis [Recovered/Resolved]
  - Application site scab [Not Recovered/Not Resolved]
  - Application site pruritus [Recovered/Resolved]
  - Application site erythema [Recovering/Resolving]
